FAERS Safety Report 6658193-1 (Version None)
Quarter: 2010Q2

REPORT INFORMATION
  Report Type: 
  Country: None (occurrence: None)
  Receive Date: 20100330
  Receipt Date: 20100324
  Transmission Date: 20101027
  Serious: Yes (Hospitalization)
  Sender: FDA-Public Use
  Company Number: B0643982A

PATIENT
  Age: 39 Year
  Sex: Female

DRUGS (4)
  1. AUGMENTIN '125' [Suspect]
     Indication: STREPTOCOCCAL SEPSIS
     Dosage: 1.2G TWICE PER DAY
     Route: 040
     Dates: start: 20091016, end: 20091021
  2. AMOXICILLIN AND CLAVULANATE POTASSIUM [Suspect]
     Indication: STREPTOCOCCAL SEPSIS
     Dosage: 1G TWICE PER DAY
     Route: 048
     Dates: start: 20091015, end: 20091015
  3. DAFALGAN [Concomitant]
     Indication: PAIN
     Route: 048
  4. PRIMPERAN INJ [Concomitant]
     Indication: VOMITING
     Route: 054

REACTIONS (1)
  - DRUG RASH WITH EOSINOPHILIA AND SYSTEMIC SYMPTOMS [None]
